FAERS Safety Report 4729709-7 (Version None)
Quarter: 2005Q3

REPORT INFORMATION
  Report Type: 
  Country: None (occurrence: None)
  Receive Date: 20050801
  Receipt Date: 20050408
  Transmission Date: 20060218
  Serious: Yes (Hospitalization)
  Sender: FDA-Public Use
  Company Number: US-MERCK-0504USA01261

PATIENT
  Age: 77 Year
  Sex: Female

DRUGS (3)
  1. VIOXX [Suspect]
     Indication: OSTEOARTHRITIS
     Route: 048
     Dates: start: 20000201, end: 20031101
  2. VIOXX [Suspect]
     Route: 048
     Dates: start: 20000201, end: 20031101
  3. ATENOLOL [Concomitant]
     Route: 065

REACTIONS (15)
  - ADVERSE EVENT [None]
  - ANGINA PECTORIS [None]
  - ATHEROSCLEROSIS [None]
  - BLOOD CHOLESTEROL INCREASED [None]
  - CARDIAC DISORDER [None]
  - CATARACT [None]
  - CATARACT OPERATION [None]
  - CHEST PAIN [None]
  - CORONARY ARTERY DISEASE [None]
  - DYSPNOEA [None]
  - FLUID RETENTION [None]
  - HEART RATE IRREGULAR [None]
  - HYPERTENSION [None]
  - OEDEMA [None]
  - OSTEOPOROSIS [None]
